FAERS Safety Report 9626242 (Version 2)
Quarter: 2013Q4

REPORT INFORMATION
  Report Type: Report from Study
  Country: US (occurrence: US)
  Receive Date: 20131016
  Receipt Date: 20131016
  Transmission Date: 20140711
  Serious: Yes (Hospitalization)
  Sender: FDA-Public Use
  Company Number: US-ROCHE-1258417

PATIENT
  Sex: Male

DRUGS (3)
  1. XELODA [Suspect]
     Indication: MALIGNANT MEDIASTINAL NEOPLASM
     Dosage: 2 WEEKS ON, 2 WEEKS OFF
     Route: 048
     Dates: start: 20130713
  2. XELODA [Suspect]
     Route: 048
  3. TEMODAR [Concomitant]

REACTIONS (6)
  - Pain in extremity [Unknown]
  - Neoplasm [Unknown]
  - Musculoskeletal pain [Unknown]
  - Weight decreased [Unknown]
  - Hypertension [Unknown]
  - Chest pain [Unknown]
